FAERS Safety Report 19726185 (Version 1)
Quarter: 2021Q3

REPORT INFORMATION
  Report Type: Spontaneous
  Country: US (occurrence: US)
  Receive Date: 20210820
  Receipt Date: 20210820
  Transmission Date: 20211014
  Serious: Yes (Life-Threatening, Hospitalization, Other)
  Sender: FDA-Public Use
  Company Number: None

PATIENT
  Age: 24 Year
  Sex: Male
  Weight: 96.75 kg

DRUGS (4)
  1. OXYCODONE 15MG [Suspect]
     Active Substance: OXYCODONE
     Indication: BACK INJURY
     Dosage: ?          QUANTITY:6 TABLET(S);OTHER FREQUENCY:6;?
     Route: 048
  2. XANAX [Concomitant]
     Active Substance: ALPRAZOLAM
  3. OXYCODONE 30MG [Suspect]
     Active Substance: OXYCODONE
     Indication: BACK INJURY
     Dosage: ?          QUANTITY:6 TABLET(S);OTHER FREQUENCY:6;?
     Route: 048
  4. ADDERALL [Concomitant]
     Active Substance: AMPHETAMINE ASPARTATE\AMPHETAMINE SULFATE\DEXTROAMPHETAMINE SACCHARATE\DEXTROAMPHETAMINE SULFATE

REACTIONS (5)
  - Incorrect route of product administration [None]
  - Intentional product use issue [None]
  - Drug dependence [None]
  - Cellulitis [None]
  - Overdose [None]

NARRATIVE: CASE EVENT DATE: 20090420
